FAERS Safety Report 6800812-0 (Version None)
Quarter: 2010Q2

REPORT INFORMATION
  Report Type: 
  Country: None (occurrence: None)
  Receive Date: 20100629
  Receipt Date: 20100618
  Transmission Date: 20101027
  Serious: Yes (Other)
  Sender: FDA-Public Use
  Company Number: US-BAYER-201025920NA

PATIENT
  Sex: Male

DRUGS (8)
  1. LEUKINE [Suspect]
     Indication: WHITE BLOOD CELL COUNT DECREASED
     Dates: start: 20100615
  2. GEMZAR [Concomitant]
     Dates: start: 20100601
  3. PROCRIT [Concomitant]
     Dates: start: 20100614, end: 20100614
  4. OXYCONTIN [Concomitant]
  5. LOTREL [Concomitant]
     Dosage: 10/40
  6. ACTOS [Concomitant]
     Dosage: 30
  7. GLYBURIDE [Concomitant]
  8. VALIUM [Concomitant]

REACTIONS (1)
  - SOMNOLENCE [None]
